FAERS Safety Report 8302687-X (Version None)
Quarter: 2012Q2

REPORT INFORMATION
  Report Type: 
  Country: None (occurrence: None)
  Receive Date: 20120420
  Receipt Date: 20120319
  Transmission Date: 20120825
  Serious: Yes (Death)
  Sender: FDA-Public Use
  Company Number: US-BAXTER-2012BAX000178

PATIENT
  Sex: Female

DRUGS (5)
  1. DIANEAL [Suspect]
  2. DIANEAL [Suspect]
  3. DIANEAL [Suspect]
     Indication: PERITONEAL DIALYSIS
  4. DIANEAL [Suspect]
  5. DIANEAL [Suspect]

REACTIONS (1)
  - DEATH [None]
